FAERS Safety Report 10427608 (Version 2)
Quarter: 2014Q4

REPORT INFORMATION
  Report Type: Spontaneous
  Country: US (occurrence: US)
  Receive Date: 20140903
  Receipt Date: 20141023
  Transmission Date: 20150528
  Serious: No
  Sender: FDA-Public Use
  Company Number: US-009507513-1408USA017081

PATIENT
  Sex: Female
  Weight: 59.41 kg

DRUGS (1)
  1. CLARITIN-D 24 HOUR [Suspect]
     Active Substance: LORATADINE\PSEUDOEPHEDRINE SULFATE
     Indication: PARANASAL SINUS HYPERSECRETION
     Dosage: 10 MG, PRN
     Route: 048
     Dates: start: 201402

REACTIONS (1)
  - Drug screen positive [Unknown]
